FAERS Safety Report 10237765 (Version 1)
Quarter: 2014Q2

REPORT INFORMATION
  Report Type: Report from Study
  Country: US (occurrence: US)
  Receive Date: 20140616
  Receipt Date: 20140616
  Transmission Date: 20141212
  Serious: Yes (Other)
  Sender: FDA-Public Use
  Company Number: US-ROCHE-1363710

PATIENT
  Sex: Male

DRUGS (14)
  1. LUCENTIS [Suspect]
     Indication: DIABETIC RETINAL OEDEMA
     Route: 050
     Dates: start: 2012
  2. LUCENTIS [Suspect]
     Indication: DIABETIC EYE DISEASE
     Route: 050
     Dates: start: 2012
  3. AVASTIN [Suspect]
     Indication: DIABETIC RETINOPATHY
     Route: 050
  4. KETOROLAC EYE DROPS [Suspect]
     Indication: PRODUCT USED FOR UNKNOWN INDICATION
     Dosage: BOTH EYES, QD PRN
     Route: 047
  5. METFORMIN [Concomitant]
     Route: 065
  6. PRAVASTATIN [Concomitant]
     Route: 065
  7. LORATADINE [Concomitant]
     Route: 065
  8. TERAZOSIN [Concomitant]
     Route: 065
  9. METOPROLOL TARTRATE [Concomitant]
     Route: 065
  10. CLONIDINE [Concomitant]
     Route: 065
  11. ASPIR 81 [Concomitant]
     Route: 065
  12. HUMALOG [Concomitant]
     Route: 058
  13. TETRACAINE [Concomitant]
     Dosage: 0.5%
     Route: 065
  14. BETADINE [Concomitant]
     Dosage: 5%
     Route: 065

REACTIONS (16)
  - Conjunctival hyperaemia [Unknown]
  - Ocular hyperaemia [Unknown]
  - Eye irritation [Unknown]
  - Visual acuity reduced [Unknown]
  - Diplopia [Unknown]
  - Visual impairment [Unknown]
  - Photopsia [Unknown]
  - Off label use [Unknown]
  - Cataract [Unknown]
  - Diabetic retinopathy [Unknown]
  - Retinopathy hypertensive [Unknown]
  - Vision blurred [Unknown]
  - Pupillary reflex impaired [Unknown]
  - Periorbital fat herniation [Unknown]
  - Eye haemorrhage [Unknown]
  - Retinal exudates [Unknown]
